FAERS Safety Report 9100301 (Version 1)
Quarter: 2013Q1

REPORT INFORMATION
  Report Type: Spontaneous
  Country: AT (occurrence: AL)
  Receive Date: 20130215
  Receipt Date: 20130215
  Transmission Date: 20140127
  Serious: Yes (Death)
  Sender: FDA-Public Use
  Company Number: AT-009507513-1302AUT005998

PATIENT
  Sex: Female

DRUGS (2)
  1. NOXAFIL [Suspect]
     Indication: ASPERGILLUS INFECTION
     Route: 048
  2. AMPHOTERICIN B [Concomitant]
     Indication: ASPERGILLUS INFECTION

REACTIONS (1)
  - Death [Fatal]
